FAERS Safety Report 4391451-2 (Version None)
Quarter: 2004Q3

REPORT INFORMATION
  Report Type: 
  Country: None (occurrence: None)
  Receive Date: 20040707
  Receipt Date: 20040623
  Transmission Date: 20050211
  Serious: Yes (Other)
  Sender: FDA-Public Use
  Company Number: GB-GLAXOSMITHKLINE-B0336724A

PATIENT
  Sex: Female

DRUGS (3)
  1. LAMICTAL [Suspect]
     Indication: BIPOLAR DISORDER
     Dosage: 100MG PER DAY
     Route: 065
  2. SERTRALINE HCL [Suspect]
     Route: 065
  3. TRAZODONE HCL [Concomitant]
     Route: 065

REACTIONS (3)
  - DRUG INTERACTION [None]
  - DYSPHASIA [None]
  - OPHTHALMOPLEGIA [None]
